FAERS Safety Report 5596014-9 (Version None)
Quarter: 2007Q4

REPORT INFORMATION
  Report Type: 
  Country: None (occurrence: None)
  Receive Date: 20071218
  Receipt Date: 20070108
  Transmission Date: 20080405
  Serious: Yes (Other)
  Sender: FDA-Public Use
  Company Number: 2006134453

PATIENT
  Age: 61 Year
  Sex: Female
  Weight: 72.6 kg

DRUGS (2)
  1. BEXTRA [Suspect]
     Indication: INFLAMMATION
     Dosage: 20 MG (20 MG, 1 IN 1 D,) ORAL
     Route: 048
     Dates: start: 20021001, end: 20030101
  2. BEXTRA [Suspect]
     Indication: PAIN IN EXTREMITY
     Dosage: 20 MG (20 MG, 1 IN 1 D,) ORAL
     Route: 048
     Dates: start: 20021001, end: 20030101

REACTIONS (2)
  - ASTHENIA [None]
  - MYOCARDIAL INFARCTION [None]
